FAERS Safety Report 8403651-2 (Version None)
Quarter: 2012Q2

REPORT INFORMATION
  Report Type: 
  Country: None (occurrence: None)
  Receive Date: 20120601
  Receipt Date: 20120523
  Transmission Date: 20120825
  Serious: Yes (Hospitalization)
  Sender: FDA-Public Use
  Company Number: DE-ACTELION-A-US2007-18243

PATIENT

DRUGS (22)
  1. TRACLEER [Concomitant]
     Indication: PULMONARY HYPERTENSION
     Route: 048
     Dates: start: 20070617
  2. SYMBICORT [Concomitant]
  3. ACETYLSALICYLIC ACID SRT [Concomitant]
  4. OXYGEN [Concomitant]
  5. PANTOPRAZOLE [Concomitant]
  6. CALCIUM CARBONATE [Concomitant]
  7. VENTAVIS [Suspect]
     Indication: PULMONARY HYPERTENSION
     Dosage: 5 UG, 6 X DAY
     Route: 055
     Dates: start: 20060130
  8. TIOTROPIUM BROMIDE [Concomitant]
  9. BISOPROLOL FUMARATE [Concomitant]
  10. LANITOP [Concomitant]
  11. CLARITHROMYCIN [Concomitant]
  12. TORSEMIDE [Concomitant]
  13. SIMVASTATIN [Concomitant]
  14. SILDENAFIL [Concomitant]
  15. CARBIMAZOLE [Concomitant]
  16. MUCOSOLVAN [Concomitant]
  17. INSPRA [Concomitant]
  18. ACETYLCYSTEINE [Concomitant]
  19. ATROVENT [Concomitant]
  20. POTASSIUM CHLORIDE [Concomitant]
  21. BRONCHICUM EXTRA STERK [Concomitant]
  22. MARCUMAR [Concomitant]

REACTIONS (21)
  - CHRONIC OBSTRUCTIVE PULMONARY DISEASE [None]
  - HYPOXIA [None]
  - HYPERCAPNIA [None]
  - DYSPNOEA [None]
  - GASTRITIS [None]
  - RESPIRATORY FAILURE [None]
  - METABOLIC ALKALOSIS [None]
  - PNEUMONIA [None]
  - NON-CARDIAC CHEST PAIN [None]
  - CONDITION AGGRAVATED [None]
  - OEDEMA PERIPHERAL [None]
  - ATRIAL FIBRILLATION [None]
  - CHEST PAIN [None]
  - WALKING DISABILITY [None]
  - SPUTUM DISCOLOURED [None]
  - COUGH [None]
  - NASOPHARYNGITIS [None]
  - RIGHT VENTRICULAR FAILURE [None]
  - WEIGHT INCREASED [None]
  - GENERAL PHYSICAL HEALTH DETERIORATION [None]
  - PULMONARY HYPERTENSION [None]
